FAERS Safety Report 8952671 (Version 2)
Quarter: 2012Q4

REPORT INFORMATION
  Report Type: 
  Country: US (occurrence: US)
  Receive Date: 20121205
  Receipt Date: 20121212
  Transmission Date: 20130627
  Serious: No
  Sender: FDA-Public Use
  Company Number: US-009507513-1212USA000542

PATIENT
  Age: 25 Year
  Sex: Female
  Weight: 53.61 kg

DRUGS (1)
  1. IMPLANON [Suspect]
     Indication: CONTRACEPTION
     Dosage: 1 DF, UNK
     Route: 059
     Dates: start: 20121128, end: 20121128

REACTIONS (2)
  - Device difficult to use [Unknown]
  - No adverse event [Unknown]
